FAERS Safety Report 5426664-1 (Version None)
Quarter: 2007Q3

REPORT INFORMATION
  Report Type: 
  Country: None (occurrence: None)
  Receive Date: 20070731
  Receipt Date: 20070529
  Transmission Date: 20080115
  Serious: No
  Sender: FDA-Public Use
  Company Number: US200705007532

PATIENT
  Age: 70 Year
  Sex: Female

DRUGS (2)
  1. BYETTA [Suspect]
     Indication: DIABETES MELLITUS
     Dosage: 10 UG, SUBCUTANEOUS
     Route: 058
  2. ANTI-DIABETICS [Concomitant]

REACTIONS (1)
  - BLOOD GLUCOSE ABNORMAL [None]
